FAERS Safety Report 9425741 (Version 2)
Quarter: 2013Q3

REPORT INFORMATION
  Report Type: Spontaneous
  Country: IT (occurrence: IT)
  Receive Date: 20130729
  Receipt Date: 20130809
  Transmission Date: 20140515
  Serious: Yes (Other)
  Sender: FDA-Public Use
  Company Number: IT-PFIZER INC-2013219220

PATIENT
  Age: 38 Year
  Sex: Female

DRUGS (5)
  1. SERTRALINE HCL [Suspect]
     Indication: DEPRESSION
     Dosage: 100 MG, DAILY
     Route: 048
     Dates: start: 20130315
  2. EN [Suspect]
     Dosage: 1 BOTTLE AND HALF
  3. SURMONTIL [Suspect]
     Dosage: 1 TABLET
  4. HALDOL [Suspect]
     Dosage: 10 DROPS
  5. MUTABON [Concomitant]
     Dosage: UNK

REACTIONS (2)
  - Suicidal ideation [Recovering/Resolving]
  - Toxicity to various agents [Recovering/Resolving]
